FAERS Safety Report 11239690 (Version 4)
Quarter: 2017Q1

REPORT INFORMATION
  Report Type: Report from Study
  Country: BR (occurrence: BR)
  Receive Date: 20150706
  Receipt Date: 20170118
  Transmission Date: 20170428
  Serious: Yes (Other)
  Sender: FDA-Public Use
  Company Number: PHHY2015BR077020

PATIENT
  Sex: Female
  Weight: 60 kg

DRUGS (1)
  1. ACLASTA [Suspect]
     Active Substance: ZOLEDRONIC ACID
     Indication: OSTEOPOROSIS
     Dosage: 5 MG, Q12MO
     Route: 042
     Dates: start: 2013

REACTIONS (17)
  - Diarrhoea [Recovered/Resolved]
  - Vomiting [Recovered/Resolved]
  - Hypoacusis [Unknown]
  - Somnolence [Unknown]
  - Dengue fever [Recovered/Resolved]
  - Learning disorder [Unknown]
  - Memory impairment [Unknown]
  - Cardiac disorder [Unknown]
  - Bone pain [Not Recovered/Not Resolved]
  - Malaise [Recovering/Resolving]
  - Weight decreased [Unknown]
  - Gait disturbance [Unknown]
  - Dizziness [Recovered/Resolved]
  - Fatigue [Recovering/Resolving]
  - Body height decreased [Unknown]
  - Arthralgia [Not Recovered/Not Resolved]
  - Pain [Recovered/Resolved]
